FAERS Safety Report 5256784-6 (Version None)
Quarter: 2007Q1

REPORT INFORMATION
  Report Type: 
  Country: None (occurrence: None)
  Receive Date: 20070306
  Receipt Date: 20070228
  Transmission Date: 20070707
  Serious: Yes (Hospitalization)
  Sender: FDA-Public Use
  Company Number: JP-AVENTIS-200710562JP

PATIENT
  Age: 14 Year
  Sex: Male

DRUGS (2)
  1. CEFOTAXIME [Suspect]
     Indication: ESCHERICHIA INFECTION
  2. CEFOTAXIME [Suspect]
     Indication: GASTROINTESTINAL DISORDER

REACTIONS (2)
  - CLOSTRIDIUM DIFFICILE COLITIS [None]
  - INFLAMMATORY BOWEL DISEASE [None]
